FAERS Safety Report 8209605-3 (Version None)
Quarter: 2012Q1

REPORT INFORMATION
  Report Type: 
  Country: None (occurrence: None)
  Receive Date: 20120314
  Receipt Date: 20120307
  Transmission Date: 20120608
  Serious: Yes (Other)
  Sender: FDA-Public Use
  Company Number: PHEH2012US005227

PATIENT
  Sex: Female

DRUGS (4)
  1. VIVELLE-DOT [Suspect]
     Dosage: 0.1 MG, 2 PER WEEK
     Route: 062
     Dates: start: 20110829
  2. LORTAB [Concomitant]
  3. AMBIEN [Concomitant]
  4. XANAX [Concomitant]

REACTIONS (8)
  - WRONG TECHNIQUE IN DRUG USAGE PROCESS [None]
  - RASH [None]
  - DEPRESSION [None]
  - PANIC ATTACK [None]
  - FEELING ABNORMAL [None]
  - SKIN LESION [None]
  - WEIGHT DECREASED [None]
  - ANXIETY [None]
